FAERS Safety Report 7928717-2 (Version None)
Quarter: 2011Q4

REPORT INFORMATION
  Report Type: 
  Country: None (occurrence: None)
  Receive Date: 20111118
  Receipt Date: 20111110
  Transmission Date: 20120403
  Serious: Yes (Hospitalization, Other)
  Sender: FDA-Public Use
  Company Number: DE-PFIZER INC-2011281971

PATIENT
  Age: 27 Year
  Sex: Female

DRUGS (6)
  1. RAMIPRIL [Suspect]
     Dosage: UNK
     Route: 065
     Dates: start: 20110615, end: 20110701
  2. LEVETIRACETAM [Suspect]
     Dosage: UNK
     Route: 065
     Dates: start: 20110607, end: 20110620
  3. RIFAXIMIN [Suspect]
     Dosage: UNK
     Route: 065
     Dates: start: 20110614, end: 20110620
  4. ECULIZUMAB [Suspect]
     Indication: HAEMOLYTIC URAEMIC SYNDROME
     Dosage: 900 MG, IV NOS
     Route: 042
     Dates: start: 20110601, end: 20110903
  5. AZITHROMYCIN [Suspect]
     Dosage: UNK
     Dates: start: 20110617, end: 20110701
  6. INSULIN [Concomitant]
     Indication: DIABETES MELLITUS
     Dosage: UNK

REACTIONS (2)
  - COLITIS ISCHAEMIC [None]
  - PANCREATITIS [None]
